FAERS Safety Report 8479004-8 (Version None)
Quarter: 2012Q2

REPORT INFORMATION
  Report Type: 
  Country: None (occurrence: None)
  Receive Date: 20120629
  Receipt Date: 20120622
  Transmission Date: 20120825
  Serious: Yes (Hospitalization, Disabling)
  Sender: FDA-Public Use
  Company Number: US-MERCK-1203USA03298

PATIENT
  Age: 75 Year
  Sex: Female

DRUGS (10)
  1. FOSAMAX [Suspect]
     Indication: OSTEOPOROSIS PROPHYLAXIS
     Route: 048
     Dates: start: 20030630, end: 20100317
  2. CIMETIDINE [Concomitant]
     Route: 048
  3. OMEGA-3 MARINE TRIGLYCERIDES [Concomitant]
     Route: 048
  4. FOSAMAX PLUS D [Suspect]
     Indication: OSTEOPENIA
     Route: 048
     Dates: start: 20030630, end: 20100317
  5. ASCORBIC ACID [Concomitant]
     Route: 048
  6. DETROL [Concomitant]
     Route: 048
  7. FOSAMAX PLUS D [Suspect]
     Indication: OSTEOPOROSIS PROPHYLAXIS
     Route: 048
     Dates: start: 20030630, end: 20100317
  8. CALCIUM (UNSPECIFIED) AND PHYTONADIONE AND VITAMIN D (UNSPECIFIED) [Concomitant]
     Route: 048
  9. MULTI-VITAMINS [Concomitant]
     Route: 048
  10. FOSAMAX [Suspect]
     Indication: OSTEOPENIA
     Route: 048
     Dates: start: 20030630, end: 20100317

REACTIONS (6)
  - OSTEOPOROSIS [None]
  - FEMUR FRACTURE [None]
  - LOW TURNOVER OSTEOPATHY [None]
  - STRESS FRACTURE [None]
  - SKIN BACTERIAL INFECTION [None]
  - SKIN INFECTION [None]
